FAERS Safety Report 15364641 (Version 1)
Quarter: 2018Q3

REPORT INFORMATION
  Report Type: Report from Study
  Country: None (occurrence: US)
  Receive Date: 20180910
  Receipt Date: 20180910
  Transmission Date: 20181010
  Serious: Yes (Other)
  Sender: FDA-Public Use
  Company Number: US-ABBVIE-18K-163-2435462-00

PATIENT
  Sex: Female

DRUGS (2)
  1. METHOTREXATE. [Suspect]
     Active Substance: METHOTREXATE
     Indication: PRODUCT USED FOR UNKNOWN INDICATION
     Route: 065
  2. HUMIRA [Suspect]
     Active Substance: ADALIMUMAB
     Indication: RHEUMATOID ARTHRITIS
     Route: 058

REACTIONS (8)
  - Liver function test increased [Unknown]
  - Musculoskeletal stiffness [Unknown]
  - Loss of consciousness [Recovered/Resolved]
  - Face injury [Unknown]
  - Fall [Recovered/Resolved]
  - Drug ineffective [Unknown]
  - Joint injury [Unknown]
  - Syncope [Unknown]
